FAERS Safety Report 14127776 (Version 3)
Quarter: 2017Q4

REPORT INFORMATION
  Report Type: Report from Study
  Country: US (occurrence: US)
  Receive Date: 20171026
  Receipt Date: 20171101
  Transmission Date: 20180321
  Serious: Yes (Other)
  Sender: FDA-Public Use
  Company Number: US-AMGEN-USASL2017158556

PATIENT
  Age: 50 Year
  Sex: Male

DRUGS (2)
  1. ENBREL [Suspect]
     Active Substance: ETANERCEPT
     Indication: PSORIASIS
     Dosage: 50 MG, 2 TIMES/WK
     Route: 065
     Dates: start: 2011, end: 2014
  2. ENBREL [Suspect]
     Active Substance: ETANERCEPT
     Dosage: UNK
     Route: 065
     Dates: start: 20171018

REACTIONS (17)
  - Skin disorder [Unknown]
  - Injection site mass [Unknown]
  - Injection site haemorrhage [Unknown]
  - Drug dose omission [Unknown]
  - Nightmare [Unknown]
  - Psoriasis [Unknown]
  - Injection site macule [Unknown]
  - Injection site reaction [Unknown]
  - Sarcoidosis [Unknown]
  - Injection site pain [Unknown]
  - Injection site coldness [Unknown]
  - Wrong technique in product usage process [Unknown]
  - Visual impairment [Unknown]
  - Feeling abnormal [Unknown]
  - Hand fracture [Unknown]
  - Toothache [Unknown]
  - Underdose [Unknown]

NARRATIVE: CASE EVENT DATE: 2011
